FAERS Safety Report 7394903-6 (Version None)
Quarter: 2011Q2

REPORT INFORMATION
  Report Type: 
  Country: None (occurrence: None)
  Receive Date: 20110405
  Receipt Date: 20110328
  Transmission Date: 20111010
  Serious: Yes (Life-Threatening, Hospitalization)
  Sender: FDA-Public Use
  Company Number: B0708717A

PATIENT
  Age: 57 Year
  Sex: Female
  Weight: 60 kg

DRUGS (8)
  1. OMEPRAZOLE [Concomitant]
  2. ZOPICLONE [Concomitant]
  3. CEFUROXIME [Suspect]
     Route: 042
     Dates: start: 20101104, end: 20101211
  4. PREGABALIN [Concomitant]
  5. VENLAFAXINE [Concomitant]
  6. OXYCONTIN [Concomitant]
  7. METHADONE [Concomitant]
  8. TRIFLUOPERAZINE HCL [Concomitant]

REACTIONS (3)
  - BLOOD POTASSIUM INCREASED [None]
  - RENAL FAILURE [None]
  - INTRAVASCULAR HAEMOLYSIS [None]
